FAERS Safety Report 18488710 (Version 1)
Quarter: 2020Q4

REPORT INFORMATION
  Report Type: Spontaneous
  Country: US (occurrence: US)
  Receive Date: 20201110
  Receipt Date: 20201110
  Transmission Date: 20210114
  Serious: Yes (Other)
  Sender: FDA-Public Use
  Company Number: US-PURDUE PHARMA-USA-2020-0151828

PATIENT
  Sex: Male

DRUGS (1)
  1. MS CONTIN [Suspect]
     Active Substance: MORPHINE SULFATE
     Indication: HEAD INJURY
     Dosage: UNK
     Route: 048

REACTIONS (1)
  - Drug dependence [Unknown]
